FAERS Safety Report 5979675-1 (Version None)
Quarter: 2008Q4

REPORT INFORMATION
  Report Type: 
  Country: None (occurrence: None)
  Receive Date: 20081204
  Receipt Date: 20080215
  Transmission Date: 20090506
  Serious: No
  Sender: FDA-Public Use
  Company Number: US-AMGEN-KDL265714

PATIENT
  Sex: Female

DRUGS (2)
  1. ENBREL [Suspect]
     Indication: POLYARTHRITIS
     Route: 058
     Dates: start: 20050701
  2. METHOTREXATE [Concomitant]
     Dates: start: 20040101

REACTIONS (6)
  - ERYTHEMA [None]
  - INJECTION SITE IRRITATION [None]
  - PAIN IN EXTREMITY [None]
  - SINUS HEADACHE [None]
  - TINEA PEDIS [None]
  - VULVOVAGINAL MYCOTIC INFECTION [None]
